FAERS Safety Report 22685110 (Version 2)
Quarter: 2024Q3

REPORT INFORMATION
  Report Type: Spontaneous
  Country: US (occurrence: US)
  Receive Date: 20230710
  Receipt Date: 20240717
  Transmission Date: 20241017
  Serious: No
  Sender: AVERITAS
  Company Number: US-GRUNENTHAL-2022-108417

PATIENT
  Age: 82 Year
  Sex: Male

DRUGS (3)
  1. QUTENZA [Suspect]
     Active Substance: CAPSAICIN
     Indication: Neuropathy peripheral
     Dosage: UNK
     Route: 061
     Dates: start: 20220202, end: 20220202
  2. QUTENZA [Suspect]
     Active Substance: CAPSAICIN
     Indication: Pain in extremity
     Dosage: UNK
     Route: 061
     Dates: start: 20220712, end: 20220712
  3. QUTENZA [Suspect]
     Active Substance: CAPSAICIN
     Dosage: UNK
     Route: 061
     Dates: start: 20230416, end: 20230416

REACTIONS (3)
  - Drug ineffective [Recovered/Resolved]
  - Product quality issue [Unknown]
  - Application site warmth [Unknown]
